FAERS Safety Report 7345041-X (Version None)
Quarter: 2011Q1

REPORT INFORMATION
  Report Type: 
  Country: None (occurrence: None)
  Receive Date: 20110310
  Receipt Date: 20110228
  Transmission Date: 20110831
  Serious: Yes (Hospitalization, Other)
  Sender: FDA-Public Use
  Company Number: US-ELI_LILLY_AND_COMPANY-US201012005907

PATIENT
  Sex: Female
  Weight: 57.959 kg

DRUGS (2)
  1. FORTEO [Suspect]
     Indication: OSTEOPOROSIS
     Dosage: 20 UG, DAILY (1/D)
     Dates: start: 20091220
  2. OXYCODONE WITH APAP [Concomitant]

REACTIONS (7)
  - ACCIDENT [None]
  - HYPERSOMNIA [None]
  - BRAIN INJURY [None]
  - SKULL FRACTURE [None]
  - DRUG DOSE OMISSION [None]
  - EYE INJURY [None]
  - INJECTION SITE PAIN [None]
